FAERS Safety Report 8239765-X (Version None)
Quarter: 2012Q1

REPORT INFORMATION
  Report Type: 
  Country: None (occurrence: None)
  Receive Date: 20120327
  Receipt Date: 20120327
  Transmission Date: 20120608
  Serious: Yes (Hospitalization)
  Sender: FDA-Public Use
  Company Number: None

PATIENT
  Age: 47 Year
  Sex: Male
  Weight: 82.1 kg

DRUGS (1)
  1. MORPHINE [Suspect]
     Indication: PAIN
     Dosage: 15 MG BID PO
     Route: 048
     Dates: start: 20090730, end: 20100821

REACTIONS (8)
  - EXPIRED DRUG ADMINISTERED [None]
  - HYPOTENSION [None]
  - VOMITING [None]
  - RESPIRATORY DEPRESSION [None]
  - HYPOXIA [None]
  - SEDATION [None]
  - SUICIDE ATTEMPT [None]
  - NAUSEA [None]
